FAERS Safety Report 8414028-8 (Version None)
Quarter: 2012Q2

REPORT INFORMATION
  Report Type: 
  Country: None (occurrence: None)
  Receive Date: 20120605
  Receipt Date: 20120529
  Transmission Date: 20120825
  Serious: No
  Sender: FDA-Public Use
  Company Number: US-PFIZER INC-2012129319

PATIENT
  Age: 73 Year
  Sex: Female

DRUGS (6)
  1. THYROID TAB [Suspect]
     Dosage: 90 MG, UNK
  2. THYROID TAB [Suspect]
     Dosage: 60 MG, 2X/DAY
  3. CYTOMEL [Suspect]
     Indication: HYPOTHYROIDISM
     Dosage: UNK
  4. THYROID TAB [Suspect]
     Indication: HYPOTHYROIDISM
     Dosage: 60 MG, 1X/DAY
     Dates: start: 20090101
  5. PRADAXA [Suspect]
     Indication: HEART RATE INCREASED
     Dosage: UNK
     Dates: start: 20111101
  6. FISH OIL [Concomitant]
     Dosage: UNK

REACTIONS (11)
  - HEART RATE INCREASED [None]
  - FEELING ABNORMAL [None]
  - THINKING ABNORMAL [None]
  - ALOPECIA [None]
  - DRY SKIN [None]
  - CONTUSION [None]
  - CONDITION AGGRAVATED [None]
  - BLOOD THYROID STIMULATING HORMONE INCREASED [None]
  - HEART RATE IRREGULAR [None]
  - SLUGGISHNESS [None]
  - DRUG INEFFECTIVE [None]
